FAERS Safety Report 17170108 (Version 2)
Quarter: 2020Q1

REPORT INFORMATION
  Report Type: Spontaneous
  Country: RO (occurrence: RO)
  Receive Date: 20191218
  Receipt Date: 20200129
  Transmission Date: 20200409
  Serious: Yes (Other)
  Sender: FDA-Public Use
  Company Number: NVSC2019RO066698

PATIENT
  Age: 66 Year
  Sex: Male

DRUGS (4)
  1. AVASTIN [Suspect]
     Active Substance: BEVACIZUMAB
     Indication: LUNG ADENOCARCINOMA
     Dosage: 15 MG/KG
     Route: 065
     Dates: start: 201705
  2. AVASTIN [Suspect]
     Active Substance: BEVACIZUMAB
     Dosage: 15 MG/KG, QW
     Route: 042
     Dates: start: 201706, end: 201812
  3. CARBOPLATIN. [Suspect]
     Active Substance: CARBOPLATIN
     Indication: LUNG ADENOCARCINOMA
     Dosage: UNK
     Route: 065
  4. PACLITAXEL. [Suspect]
     Active Substance: PACLITAXEL
     Indication: LUNG ADENOCARCINOMA
     Dosage: 225 MG/M2
     Route: 065
     Dates: start: 201705

REACTIONS (4)
  - Proteinuria [Unknown]
  - Anaemia [Recovered/Resolved]
  - Leukopenia [Recovered/Resolved]
  - Neutropenia [Unknown]
